FAERS Safety Report 13520664 (Version 2)
Quarter: 2017Q2

REPORT INFORMATION
  Report Type: Spontaneous
  Country: CN (occurrence: CN)
  Receive Date: 20170508
  Receipt Date: 20170517
  Transmission Date: 20170830
  Serious: Yes (Other)
  Sender: FDA-Public Use
  Company Number: CN-ASTRAZENECA-2017SE37218

PATIENT
  Age: 65 Year
  Sex: Female

DRUGS (2)
  1. IRESSA [Suspect]
     Active Substance: GEFITINIB
     Indication: LUNG ADENOCARCINOMA
     Route: 048
     Dates: start: 20170401
  2. SERETIDE [Concomitant]
     Active Substance: FLUTICASONE PROPIONATE\SALMETEROL XINAFOATE
     Indication: ASTHMA
     Dates: start: 20170404

REACTIONS (17)
  - Ascites [Unknown]
  - Abdominal distension [Unknown]
  - Counterfeit drug administered [Unknown]
  - Asthma [Unknown]
  - Skin fissures [Recovered/Resolved]
  - Impaired healing [Unknown]
  - Epistaxis [Recovering/Resolving]
  - Paronychia [Not Recovered/Not Resolved]
  - Dysuria [Unknown]
  - Mass [Unknown]
  - Decreased appetite [Unknown]
  - Pruritus [Not Recovered/Not Resolved]
  - Drug ineffective [Unknown]
  - Insomnia [Unknown]
  - Dyspepsia [Unknown]
  - Rash [Not Recovered/Not Resolved]
  - Therapeutic response unexpected [Unknown]

NARRATIVE: CASE EVENT DATE: 2017
